FAERS Safety Report 6710281-7 (Version None)
Quarter: 2010Q2

REPORT INFORMATION
  Report Type: 
  Country: None (occurrence: None)
  Receive Date: 20100430
  Receipt Date: 20100409
  Transmission Date: 20101027
  Serious: Yes (Other)
  Sender: FDA-Public Use
  Company Number: 2010-00246

PATIENT
  Age: 48 Year
  Sex: Female
  Weight: 56.246 kg

DRUGS (11)
  1. RAMIPRIL [Suspect]
     Indication: DRUG USE FOR UNKNOWN INDICATION
     Dosage: 2.5 MG (1 IN 1 D), PER ORAL
     Route: 048
     Dates: start: 20081001
  2. ATENOLOL [Concomitant]
  3. LASIX [Concomitant]
  4. EXJADE [Concomitant]
  5. EVISTA [Concomitant]
  6. CALCIUM + D [Concomitant]
  7. FLONASE [Concomitant]
  8. K-DUR OR TBCR [Concomitant]
  9. M-VIT [Concomitant]
  10. MAGNESIUM ACETATE [Concomitant]
  11. METFORMIN HCL [Concomitant]

REACTIONS (6)
  - CARDIAC FAILURE [None]
  - CONDITION AGGRAVATED [None]
  - DYSPNOEA [None]
  - FATIGUE [None]
  - PULMONARY HYPERTENSION [None]
  - SENSATION OF HEAVINESS [None]
